FAERS Safety Report 9882148 (Version 2)
Quarter: 2014Q1

REPORT INFORMATION
  Report Type: Report from Study
  Country: CA (occurrence: CA)
  Receive Date: 20140207
  Receipt Date: 20140310
  Transmission Date: 20141002
  Serious: Yes (Hospitalization, Other)
  Sender: FDA-Public Use
  Company Number: CA-BRISTOL-MYERS SQUIBB COMPANY-20131322

PATIENT
  Age: 63 Year
  Sex: Female

DRUGS (8)
  1. ORENCIA [Suspect]
     Indication: RHEUMATOID ARTHRITIS
     Dosage: 1DF=500 UNIT NOS.
     Dates: start: 20080725
  2. CORTISONE [Concomitant]
  3. CELEBREX [Concomitant]
  4. FOSAMAX [Concomitant]
  5. CELEXA [Concomitant]
  6. CALCIUM [Concomitant]
  7. LEUCOVORIN [Concomitant]
  8. MYOCHRYSINE [Concomitant]

REACTIONS (5)
  - Aortic rupture [Unknown]
  - Cerebrovascular accident [Recovered/Resolved]
  - Aphasia [Recovered/Resolved]
  - Pulmonary oedema [Unknown]
  - Fatigue [Unknown]
